FAERS Safety Report 15633818 (Version 2)
Quarter: 2019Q2

REPORT INFORMATION
  Report Type: Spontaneous
  Country: US (occurrence: US)
  Receive Date: 20181119
  Receipt Date: 20190401
  Transmission Date: 20190711
  Serious: Yes (Other)
  Sender: FDA-Public Use
  Company Number: US-SA-2018SA316015

PATIENT
  Age: 46 Year
  Sex: Female
  Weight: 86.18 kg

DRUGS (9)
  1. TAXOTERE [Suspect]
     Active Substance: DOCETAXEL
     Indication: BREAST CANCER FEMALE
     Dosage: 165 MG, Q3W
     Route: 042
     Dates: start: 20070124, end: 20070124
  2. NEOSAR [Concomitant]
     Active Substance: CYCLOPHOSPHAMIDE
  3. DOXIL [DOXYCYCLINE HYDROCHLORIDE] [Concomitant]
  4. TAXOL [Concomitant]
     Active Substance: PACLITAXEL
     Dosage: 338 MG, QOW
     Dates: start: 20070209, end: 20070209
  5. CYTOXAN [Concomitant]
     Active Substance: CYCLOPHOSPHAMIDE
     Dosage: 780 MG, QOW
     Dates: start: 20070111, end: 20070111
  6. VECTIBIX [Concomitant]
     Active Substance: PANITUMUMAB
  7. ACTINOMYCIN C [Concomitant]
     Active Substance: CACTINOMYCIN
     Dosage: 78 MG, UNK
  8. CYTOXAN [Concomitant]
     Active Substance: CYCLOPHOSPHAMIDE
     Dosage: 780 MG, QOW
     Dates: start: 20061127, end: 20061127
  9. TAXOL [Concomitant]
     Active Substance: PACLITAXEL
     Dosage: 338 MG, QOW
     Dates: start: 20070511, end: 20070511

REACTIONS (3)
  - Alopecia [Recovering/Resolving]
  - Emotional distress [Unknown]
  - Psychological trauma [Unknown]
